FAERS Safety Report 8348742 (Version 5)
Quarter: 2013Q1

REPORT INFORMATION
  Report Type: Spontaneous
  Country: US (occurrence: US)
  Receive Date: 20120123
  Receipt Date: 20130305
  Transmission Date: 20140127
  Serious: Yes (Other)
  Sender: FDA-Public Use
  Company Number: US-PFIZER INC-2011106569

PATIENT
  Age: 71 Year
  Sex: Female
  Weight: 63.49 kg

DRUGS (9)
  1. PROTONIX [Suspect]
     Indication: OESOPHAGEAL DISORDER
     Dosage: 40 MG, 1X/DAY
  2. PROTONIX [Suspect]
     Indication: SCLEROEDEMA
  3. LIPITOR [Concomitant]
     Dosage: 20 MG, UNK
  4. RANITIDINE [Concomitant]
     Dosage: 150 MG, UNK
  5. ALPRAZOLAM [Concomitant]
     Dosage: 5 MG, AS NEEDED
  6. MINOCYCLINE [Concomitant]
     Dosage: 50 MG, UNK
  7. ASPIRIN [Concomitant]
     Dosage: UNK
  8. VITAMIN D3 [Concomitant]
     Dosage: UNK
  9. ALIGN (ALL OTHER THERAPEUTIC PRODUCTS) [Concomitant]
     Dosage: UNK

REACTIONS (1)
  - Breast cancer female [Unknown]
